FAERS Safety Report 9116013 (Version 6)
Quarter: 2013Q4

REPORT INFORMATION
  Report Type: Spontaneous
  Country: US (occurrence: US)
  Receive Date: 20130225
  Receipt Date: 20131126
  Transmission Date: 20140711
  Serious: Yes (Hospitalization, Other)
  Sender: FDA-Public Use
  Company Number: US-009507513-1206USA05074

PATIENT
  Sex: Female

DRUGS (5)
  1. FOSAMAX [Suspect]
     Indication: OSTEOPENIA
     Dosage: 10 MG, QD
     Route: 048
     Dates: start: 1999
  2. FOSAMAX [Suspect]
     Indication: OSTEOPOROSIS
     Dosage: 70 MG, QW
     Route: 048
     Dates: start: 1999
  3. ALENDRONATE SODIUM [Suspect]
     Indication: OSTEOPOROSIS
     Dosage: 70 MG, QW
     Route: 048
     Dates: start: 20080317, end: 20120102
  4. OS-CAL (CALCIUM CARBONATE) [Concomitant]
     Dosage: 500 MG, UNK
     Dates: start: 1994
  5. ESTROGENS (UNSPECIFIED) [Concomitant]

REACTIONS (20)
  - Femur fracture [Unknown]
  - Intramedullary rod insertion [Unknown]
  - Open reduction of fracture [Recovering/Resolving]
  - Tibia fracture [Unknown]
  - Fibula fracture [Unknown]
  - Ankle fracture [Unknown]
  - Thyroidectomy [Unknown]
  - Spinal fusion surgery [Unknown]
  - Cholecystectomy [Unknown]
  - Osteoarthritis [Unknown]
  - Low turnover osteopathy [Unknown]
  - Road traffic accident [Unknown]
  - Hypothyroidism [Unknown]
  - Thyroid mass [Unknown]
  - Oestrogen deficiency [Unknown]
  - Hepatitis B [Unknown]
  - Hysterectomy [Unknown]
  - Appendicectomy [Unknown]
  - Pyrexia [Recovered/Resolved]
  - Arthralgia [Unknown]
